FAERS Safety Report 9585750 (Version 1)
Quarter: 2013Q4

REPORT INFORMATION
  Report Type: Spontaneous
  Country: US (occurrence: None)
  Receive Date: 20131002
  Receipt Date: 20131002
  Transmission Date: 20140711
  Serious: Yes (Death)
  Sender: FDA-Public Use
  Company Number: None

PATIENT
  Age: 49 Year
  Sex: Male
  Weight: 68.04 kg

DRUGS (2)
  1. CYMBALTA [Suspect]
     Indication: DEPRESSION
     Route: 048
     Dates: start: 20130816, end: 20130907
  2. CYMBALTA [Suspect]
     Indication: PROCEDURAL PAIN
     Route: 048
     Dates: start: 20130816, end: 20130907

REACTIONS (3)
  - Depression [None]
  - Irritability [None]
  - Completed suicide [None]
